FAERS Safety Report 24733868 (Version 2)
Quarter: 2024Q4

REPORT INFORMATION
  Report Type: Spontaneous
  Country: US (occurrence: US)
  Receive Date: 20241214
  Receipt Date: 20241230
  Transmission Date: 20250114
  Serious: Yes (Death)
  Sender: TEVA
  Company Number: US-TEVA-VS-3274474

PATIENT

DRUGS (1)
  1. DISULFIRAM [Suspect]
     Active Substance: DISULFIRAM
     Indication: Alcohol use disorder
     Route: 065

REACTIONS (1)
  - Drug-induced liver injury [Fatal]
